FAERS Safety Report 5110858-9 (Version None)
Quarter: 2006Q3

REPORT INFORMATION
  Report Type: 
  Country: None (occurrence: None)
  Receive Date: 20060918
  Receipt Date: 20060907
  Transmission Date: 20061208
  Serious: Yes (Hospitalization)
  Sender: FDA-Public Use
  Company Number: 2006-02341

PATIENT
  Age: 62 Year
  Sex: Male
  Weight: 61.7 kg

DRUGS (9)
  1. VELCADE [Suspect]
     Indication: MULTIPLE MYELOMA
     Dosage: 1.30 MG/M2, INTRAVENOUS
     Route: 042
     Dates: start: 20060721, end: 20060817
  2. DOXORUBICIN HCL [Suspect]
     Indication: MULTIPLE MYELOMA
     Dosage: 15.00 MG/M2, INTRAVENOUS
     Route: 042
     Dates: start: 20060721, end: 20060814
  3. MORPHINE [Concomitant]
  4. RANITIDINE [Concomitant]
  5. REGLAN [Concomitant]
  6. PRILOSEC [Concomitant]
  7. MIRALAX [Concomitant]
  8. SENOKOT [Concomitant]
  9. OXYCODONE HCL [Concomitant]

REACTIONS (12)
  - ARTHRALGIA [None]
  - DYSPHAGIA [None]
  - HAEMOGLOBIN DECREASED [None]
  - HERPES ZOSTER DISSEMINATED [None]
  - HYPONATRAEMIA [None]
  - INTERVERTEBRAL DISC PROTRUSION [None]
  - NEUTROPHIL COUNT DECREASED [None]
  - PAIN IN EXTREMITY [None]
  - PLATELET COUNT DECREASED [None]
  - SCAB [None]
  - SKIN EXFOLIATION [None]
  - WHITE BLOOD CELL COUNT DECREASED [None]
